FAERS Safety Report 9575303 (Version 3)
Quarter: 2013Q4

REPORT INFORMATION
  Report Type: Report from Study
  Country: US (occurrence: US)
  Receive Date: 20131001
  Receipt Date: 20131127
  Transmission Date: 20140711
  Serious: Yes (Death, Hospitalization, Other)
  Sender: FDA-Public Use
  Company Number: US-ACTELION-A-NJ2013-88894

PATIENT
  Age: 74 Year
  Sex: Female

DRUGS (1)
  1. TRACLEER [Suspect]
     Indication: PULMONARY ARTERIAL HYPERTENSION
     Dosage: UNK
     Route: 048
     Dates: start: 20030905, end: 20131111

REACTIONS (8)
  - Cerebral haemorrhage [Fatal]
  - Cardiac arrest [Recovering/Resolving]
  - Vascular graft [Recovering/Resolving]
  - Endotracheal intubation complication [Recovering/Resolving]
  - Vocal cord disorder [Recovering/Resolving]
  - Vascular occlusion [Recovering/Resolving]
  - Poor peripheral circulation [Recovering/Resolving]
  - Pain [Recovering/Resolving]
